FAERS Safety Report 11237423 (Version 1)
Quarter: 2015Q3

REPORT INFORMATION
  Report Type: Report from Study
  Country: FR (occurrence: FR)
  Receive Date: 20150703
  Receipt Date: 20150703
  Transmission Date: 20151125
  Serious: Yes (Hospitalization)
  Sender: FDA-Public Use
  Company Number: FR-ROCHE-1602127

PATIENT
  Age: 78 Year
  Sex: Female
  Weight: 77 kg

DRUGS (4)
  1. BEVACIZUMAB [Suspect]
     Active Substance: BEVACIZUMAB
     Indication: OVARIAN CANCER
     Dosage: DATE OF LAST DOSE PRIOR TO ADVERSE EVENT:27/MAY/2015
     Route: 042
     Dates: start: 20150217
  2. CARBOPLATIN. [Suspect]
     Active Substance: CARBOPLATIN
     Indication: OVARIAN CANCER
     Dosage: DATE OF LAST DOSE PRIOR TO ADVERSE EVENT:12/MAY/2015
     Route: 042
     Dates: start: 20150217
  3. AMLOR [Concomitant]
     Active Substance: AMLODIPINE BESYLATE
     Indication: HYPOTENSION
     Route: 048
  4. DOXORUBICINE IN LIPOSOMES STUDY DRUG [Suspect]
     Active Substance: DOXORUBICIN
     Indication: OVARIAN CANCER
     Dosage: DATE OF LAST DOSE PRIOR TO ADVERSE EVENT:12/JUN/2015
     Route: 042
     Dates: start: 20150217

REACTIONS (1)
  - Renal failure [Recovered/Resolved]

NARRATIVE: CASE EVENT DATE: 20150611
